FAERS Safety Report 11914047 (Version 1)
Quarter: 2016Q1

REPORT INFORMATION
  Report Type: Spontaneous
  Country: IT (occurrence: IT)
  Receive Date: 20160113
  Receipt Date: 20160113
  Transmission Date: 20160526
  Serious: Yes (Other)
  Sender: FDA-Public Use
  Company Number: IT-FRESENIUS KABI-FK201600121

PATIENT
  Age: 34 Year
  Sex: Female

DRUGS (3)
  1. THIOPENTAL [Suspect]
     Active Substance: THIOPENTAL
     Indication: ENDOTRACHEAL INTUBATION
     Route: 065
  2. CEFTAZIDIME (MANUFACTURER UNKNOWN) [Suspect]
     Active Substance: CEFTAZIDIME
     Indication: LOWER RESPIRATORY TRACT INFECTION
     Route: 065
  3. CISATRACURIUM (MANUFACTURER UNKNOWN) [Suspect]
     Active Substance: CISATRACURIUM
     Indication: ENDOTRACHEAL INTUBATION
     Route: 065

REACTIONS (6)
  - Caesarean section [None]
  - Sinus tachycardia [Recovering/Resolving]
  - Exposure during pregnancy [Recovering/Resolving]
  - Premature delivery [None]
  - Hypertension [Recovering/Resolving]
  - Pneumonia [Recovering/Resolving]
